FAERS Safety Report 22388254 (Version 1)
Quarter: 2023Q2

REPORT INFORMATION
  Report Type: Spontaneous
  Country: US (occurrence: US)
  Receive Date: 20230531
  Receipt Date: 20230531
  Transmission Date: 20230721
  Serious: No
  Sender: FDA-Public Use
  Company Number: US-Ipsen Biopharmaceuticals, Inc.-2023-11834

PATIENT
  Sex: Female

DRUGS (1)
  1. DYSPORT [Suspect]
     Active Substance: ABOBOTULINUMTOXINA
     Indication: Hereditary spastic paraplegia
     Dosage: 500 UNITS IN MUSCLE TO LOWER EXTREMITY EVERY 12 WEEKS
     Route: 030
     Dates: start: 20230215, end: 20230215

REACTIONS (1)
  - Drug ineffective [Unknown]
